FAERS Safety Report 10065176 (Version 2)
Quarter: 2015Q2

REPORT INFORMATION
  Report Type: Report from Study
  Country: JP (occurrence: JP)
  Receive Date: 20140408
  Receipt Date: 20150624
  Transmission Date: 20150821
  Serious: Yes (Life-Threatening, Hospitalization, Other)
  Sender: FDA-Public Use
  Company Number: JP-ALEXION PHARMACEUTICALS INC.-A201401154

PATIENT

DRUGS (3)
  1. SOLIRIS [Suspect]
     Active Substance: ECULIZUMAB
     Indication: PAROXYSMAL NOCTURNAL HAEMOGLOBINURIA
     Dosage: 600 MG, QW
     Route: 042
     Dates: start: 20110624, end: 20110715
  2. SOLIRIS [Suspect]
     Active Substance: ECULIZUMAB
     Dosage: 900 MG, Q2W
     Route: 042
     Dates: start: 20141002
  3. SOLIRIS [Suspect]
     Active Substance: ECULIZUMAB
     Dosage: 900 MG, Q2W
     Route: 042
     Dates: start: 20110811

REACTIONS (13)
  - Anaemia [Unknown]
  - Activities of daily living impaired [Unknown]
  - Pneumonia aspiration [Recovered/Resolved]
  - Brain contusion [Unknown]
  - Blood lactate dehydrogenase increased [Unknown]
  - Fall [Unknown]
  - Dysphagia [Unknown]
  - Haemoglobin decreased [Recovering/Resolving]
  - Pneumonia aspiration [Unknown]
  - Bronchitis [Unknown]
  - Vomiting [Unknown]
  - Subdural haematoma [Unknown]
  - Haemolysis [Unknown]

NARRATIVE: CASE EVENT DATE: 20140316
